FAERS Safety Report 5514991-9 (Version None)
Quarter: 2007Q4

REPORT INFORMATION
  Report Type: 
  Country: None (occurrence: None)
  Receive Date: 20071113
  Receipt Date: 20061106
  Transmission Date: 20080405
  Serious: No
  Sender: FDA-Public Use
  Company Number: A0626344A

PATIENT
  Age: 77 Year
  Sex: Female

DRUGS (6)
  1. COREG [Suspect]
     Indication: LEFT VENTRICULAR DYSFUNCTION
     Dosage: 12.5MG TWICE PER DAY
     Route: 048
     Dates: start: 20060824
  2. ZESTRIL [Suspect]
  3. ZESTRIL [Concomitant]
  4. ASPIRIN [Concomitant]
  5. REMERON [Concomitant]
  6. KLONOPIN [Concomitant]

REACTIONS (4)
  - ABDOMINAL DISCOMFORT [None]
  - CONSTIPATION [None]
  - FLATULENCE [None]
  - GASTROINTESTINAL PAIN [None]
